FAERS Safety Report 25956809 (Version 5)
Quarter: 2025Q4

REPORT INFORMATION
  Report Type: Spontaneous
  Country: BR (occurrence: BR)
  Receive Date: 20251024
  Receipt Date: 20251229
  Transmission Date: 20260117
  Serious: Yes (Life-Threatening)
  Sender: NOVARTIS
  Company Number: BR-002147023-NVSC2025BR163800

PATIENT
  Sex: Female

DRUGS (3)
  1. ELTROMBOPAG OLAMINE [Suspect]
     Active Substance: ELTROMBOPAG OLAMINE
     Indication: Product used for unknown indication
     Dosage: 50 MG (CT BL  AL/AL X  14)
     Route: 065
  2. ELTROMBOPAG OLAMINE [Suspect]
     Active Substance: ELTROMBOPAG OLAMINE
     Dosage: 50 MG (CT BL  AL/AL X  14)
     Route: 065
  3. ELTROMBOPAG OLAMINE [Suspect]
     Active Substance: ELTROMBOPAG OLAMINE
     Dosage: 50 MG (50MG WITH 14 TABLETS)
     Route: 065

REACTIONS (11)
  - Platelet count decreased [Not Recovered/Not Resolved]
  - Fear of death [Not Recovered/Not Resolved]
  - Malaise [Not Recovered/Not Resolved]
  - Drug ineffective [Not Recovered/Not Resolved]
  - Agoraphobia [Not Recovered/Not Resolved]
  - Product dose omission issue [Not Recovered/Not Resolved]
  - Product supply issue [Unknown]
  - Nasopharyngitis [Unknown]
  - Packaging design issue [Not Recovered/Not Resolved]
  - Nervousness [Not Recovered/Not Resolved]
  - Cardiac disorder [Not Recovered/Not Resolved]

NARRATIVE: CASE EVENT DATE: 20250101
